FAERS Safety Report 8789040 (Version 3)
Quarter: 2014Q1

REPORT INFORMATION
  Report Type: Report from Study
  Country: JP (occurrence: JP)
  Receive Date: 20120916
  Receipt Date: 20140129
  Transmission Date: 20141002
  Serious: Yes (Death)
  Sender: FDA-Public Use
  Company Number: JP-009507513-1209JPN005038

PATIENT
  Age: 81 Year
  Sex: Male

DRUGS (10)
  1. ZOLINZA CAPSULES 100MG [Suspect]
     Indication: ANAPLASTIC LARGE CELL LYMPHOMA T- AND NULL-CELL TYPES
     Dosage: 300 MG, QD
     Route: 048
     Dates: start: 20111121, end: 20120214
  2. PARIET [Concomitant]
     Indication: PROPHYLAXIS
     Dosage: 10 MG, QD
     Route: 048
  3. MAGMITT [Concomitant]
     Indication: PROPHYLAXIS
     Dosage: 660 MG, TID
     Route: 048
  4. MIYA BM [Concomitant]
     Indication: PROPHYLAXIS
     Dosage: 1 G, TID
     Route: 048
  5. GASLON N [Concomitant]
     Indication: PROPHYLAXIS
     Dosage: 2 MG, BID
     Route: 048
  6. BAKTAR [Concomitant]
     Indication: PROPHYLAXIS
     Dosage: 1 DF, QD
     Route: 048
  7. METHYCOBAL [Concomitant]
     Dosage: 500 MICROGRAM, TID
     Route: 048
  8. LYRICA [Concomitant]
     Dosage: 75 MG, BEFORE SLEEP
     Route: 048
  9. PRIMPERAN [Concomitant]
     Indication: PROPHYLAXIS
     Dosage: 5 MG, TID
     Route: 048
  10. ZYLORIC [Concomitant]
     Indication: PROPHYLAXIS
     Dosage: 100 MG, QD
     Route: 048
     Dates: start: 20111121, end: 20111215

REACTIONS (3)
  - Anaplastic large cell lymphoma T- and null-cell types [Fatal]
  - Platelet count decreased [Recovered/Resolved]
  - Drug ineffective [Unknown]
